FAERS Safety Report 8362110-6 (Version None)
Quarter: 2012Q2

REPORT INFORMATION
  Report Type: 
  Country: None (occurrence: None)
  Receive Date: 20120515
  Receipt Date: 20120507
  Transmission Date: 20120825
  Serious: Yes (Hospitalization, Other)
  Sender: FDA-Public Use
  Company Number: US-TEVA-336948USA

PATIENT
  Sex: Female
  Weight: 63.56 kg

DRUGS (8)
  1. VENLAFAXINE [Concomitant]
     Route: 048
  2. CALCIUM [Concomitant]
  3. ESTROGEN NOS [Concomitant]
  4. BUSPIRONE HCL [Concomitant]
     Indication: ANXIETY
     Dates: start: 20110101, end: 20120101
  5. ACETYLSALICYLIC ACID SRT [Concomitant]
     Dates: end: 20120101
  6. LORAZEPAM [Concomitant]
     Indication: ANXIETY
  7. IBUPROFEN [Concomitant]
     Dates: end: 20120101
  8. PROVIGIL [Suspect]
     Indication: NARCOLEPSY
     Route: 048
     Dates: start: 20111231

REACTIONS (8)
  - PEPTIC ULCER [None]
  - HAEMORRHAGE [None]
  - ABDOMINAL DISCOMFORT [None]
  - DRUG INEFFECTIVE [None]
  - ACCIDENT AT WORK [None]
  - HEADACHE [None]
  - CONVULSION [None]
  - PRODUCT TASTE ABNORMAL [None]
